FAERS Safety Report 18565311 (Version 1)
Quarter: 2020Q4

REPORT INFORMATION
  Report Type: Spontaneous
  Country: US (occurrence: US)
  Receive Date: 20201201
  Receipt Date: 20201201
  Transmission Date: 20210114
  Serious: No
  Sender: FDA-Public Use
  Company Number: None

PATIENT
  Age: 69 Year
  Sex: Male
  Weight: 100 kg

DRUGS (1)
  1. HEPARIN [Suspect]
     Active Substance: HEPARIN SODIUM
     Dates: start: 20201130, end: 20201130

REACTIONS (3)
  - Coagulation time shortened [None]
  - Product quality issue [None]
  - Coagulation time prolonged [None]

NARRATIVE: CASE EVENT DATE: 20201130
